FAERS Safety Report 11343877 (Version 4)
Quarter: 2015Q4

REPORT INFORMATION
  Report Type: Spontaneous
  Country: US (occurrence: US)
  Receive Date: 20150806
  Receipt Date: 20151120
  Transmission Date: 20160304
  Serious: Yes (Hospitalization)
  Sender: FDA-Public Use
  Company Number: US-PFIZER INC-2015259918

PATIENT
  Age: 74 Year
  Sex: Female
  Weight: 59 kg

DRUGS (3)
  1. EPITOL [Concomitant]
     Active Substance: CARBAMAZEPINE
     Indication: TRIGEMINAL NEURALGIA
     Dosage: 200 MG, 3X/DAY
     Route: 048
  2. LISINOPRIL. [Concomitant]
     Active Substance: LISINOPRIL
     Indication: VERTIGO
     Dosage: UNK, 1X/DAY
     Route: 048
  3. LYRICA [Suspect]
     Active Substance: PREGABALIN
     Indication: TRIGEMINAL NEURALGIA
     Dosage: 150 MG, 3X/DAY
     Route: 048
     Dates: start: 2010

REACTIONS (10)
  - Pain [Recovered/Resolved]
  - Visual acuity reduced [Unknown]
  - Trigeminal neuralgia [Unknown]
  - Malaise [Unknown]
  - Condition aggravated [Unknown]
  - Dizziness [Recovered/Resolved]
  - Discomfort [Unknown]
  - Nausea [Recovered/Resolved]
  - Hypertension [Recovered/Resolved]
  - Nervousness [Unknown]
